FAERS Safety Report 12500589 (Version 3)
Quarter: 2016Q3

REPORT INFORMATION
  Report Type: Spontaneous
  Country: US (occurrence: US)
  Receive Date: 20160627
  Receipt Date: 20160823
  Transmission Date: 20161109
  Serious: Yes (Other)
  Sender: FDA-Public Use
  Company Number: US-PFIZER INC-2016311898

PATIENT
  Age: 72 Year
  Sex: Female

DRUGS (2)
  1. CELEBREX [Suspect]
     Active Substance: CELECOXIB
     Dosage: 200 MG, 2X/DAY
     Route: 048
     Dates: end: 2013
  2. CELEBREX [Suspect]
     Active Substance: CELECOXIB
     Indication: OSTEOARTHRITIS
     Dosage: 280 MG, 2X/DAY
     Dates: start: 2000

REACTIONS (3)
  - Mycobacterial infection [Not Recovered/Not Resolved]
  - Renal failure [Unknown]
  - Bacterial infection [Unknown]

NARRATIVE: CASE EVENT DATE: 2011
